FAERS Safety Report 7518348-0 (Version None)
Quarter: 2011Q2

REPORT INFORMATION
  Report Type: 
  Country: None (occurrence: None)
  Receive Date: 20110602
  Receipt Date: 20090930
  Transmission Date: 20111010
  Serious: Yes (Other)
  Sender: FDA-Public Use
  Company Number: US-BAYER-200934409NA

PATIENT
  Age: 51 Year
  Sex: Male
  Weight: 96.145 kg

DRUGS (10)
  1. ANCEF [Concomitant]
     Route: 042
  2. ACETYLSALICYLIC ACID SRT [Concomitant]
     Dosage: TWICE IN A WEEK (TUESDAY AND WEDNESDAY)
  3. CONTRAST MEDIA [Concomitant]
     Indication: CATHETERISATION CARDIAC
     Dosage: UNK
     Dates: start: 19990729
  4. NITROGLYCERIN [Concomitant]
     Dosage: 1/150 AS NEEDED
  5. HEPARIN [Concomitant]
     Route: 042
  6. ALBUMIN (HUMAN) [Concomitant]
     Dosage: UNK
     Route: 042
     Dates: start: 19990730
  7. TRASYLOL [Suspect]
     Dosage: 200 ML PUMP PRIME
     Route: 042
     Dates: start: 19990730
  8. TRASYLOL [Suspect]
     Indication: CORONARY ARTERY BYPASS
     Dosage: 1 ML, INITIAL DOSE
     Route: 042
     Dates: start: 19990730
  9. RED BLOOD CELLS [Concomitant]
     Dosage: 4 U, UNK
     Dates: start: 19990730
  10. HESPAN IN EXCEL PLASTIC CONTAINER [Concomitant]
     Dosage: UNK
     Route: 042
     Dates: start: 19990730

REACTIONS (10)
  - RENAL INJURY [None]
  - ANXIETY [None]
  - UNEVALUABLE EVENT [None]
  - RENAL FAILURE [None]
  - INJURY [None]
  - RENAL IMPAIRMENT [None]
  - FEAR [None]
  - PAIN [None]
  - EMOTIONAL DISTRESS [None]
  - STRESS [None]
